FAERS Safety Report 9925479 (Version 1)
Quarter: 2014Q1

REPORT INFORMATION
  Report Type: Spontaneous
  Country: US (occurrence: None)
  Receive Date: 20140225
  Receipt Date: 20140225
  Transmission Date: 20141002
  Serious: No
  Sender: FDA-Public Use
  Company Number: None

PATIENT
  Age: 59 Year
  Sex: Male
  Weight: 94.1 kg

DRUGS (1)
  1. PHENTERMINE [Suspect]
     Indication: WEIGHT CONTROL
     Route: 048
     Dates: start: 20130602, end: 20131121

REACTIONS (2)
  - Benign prostatic hyperplasia [None]
  - Insomnia [None]
